FAERS Safety Report 8876160 (Version 1)
Quarter: 2012Q4

REPORT INFORMATION
  Report Type: 
  Country: US (occurrence: US)
  Receive Date: 20121030
  Receipt Date: 20121030
  Transmission Date: 20130627
  Serious: Yes (Other)
  Sender: FDA-Public Use
  Company Number: US-INCYTE CORPORATION-2012IN002138

PATIENT
  Age: 70 Year
  Sex: Male

DRUGS (2)
  1. JAKAFI [Suspect]
     Dosage: 10 mg, bid
     Route: 048
     Dates: start: 20120726
  2. CYMBALTA [Concomitant]

REACTIONS (3)
  - Fall [Unknown]
  - Foot fracture [Unknown]
  - Muscle spasms [Unknown]
